FAERS Safety Report 5793180-7 (Version None)
Quarter: 2008Q2

REPORT INFORMATION
  Report Type: 
  Country: None (occurrence: None)
  Receive Date: 20080626
  Receipt Date: 20080626
  Transmission Date: 20081010
  Serious: Yes (Other)
  Sender: FDA-Public Use
  Company Number: None

PATIENT
  Age: 61 Year
  Sex: Female
  Weight: 57.1532 kg

DRUGS (1)
  1. LYRICA [Suspect]

REACTIONS (6)
  - AMNESIA [None]
  - DISTURBANCE IN ATTENTION [None]
  - FALL [None]
  - MUSCLE SPASMS [None]
  - VISION BLURRED [None]
  - WEIGHT INCREASED [None]
